FAERS Safety Report 25379918 (Version 5)
Quarter: 2025Q4

REPORT INFORMATION
  Report Type: Spontaneous
  Country: PA (occurrence: PA)
  Receive Date: 20250530
  Receipt Date: 20251217
  Transmission Date: 20260117
  Serious: Yes (Other)
  Sender: SANDOZ
  Company Number: PA-002147023-NVSC2025PA083847

PATIENT
  Age: 74 Year
  Sex: Female

DRUGS (5)
  1. FULVESTRANT [Suspect]
     Active Substance: FULVESTRANT
     Dosage: 1 DOSAGE FORM, QMO
     Route: 065
     Dates: start: 202406
  2. FULVESTRANT [Suspect]
     Active Substance: FULVESTRANT
     Indication: Breast cancer metastatic
     Dosage: 4 DOSAGE FORM
     Route: 058
     Dates: start: 20240626
  3. KISQALI [Suspect]
     Active Substance: RIBOCICLIB SUCCINATE
     Indication: Breast cancer metastatic
     Dosage: 600 MG, QD
     Route: 048
     Dates: start: 20240626
  4. KISQALI [Suspect]
     Active Substance: RIBOCICLIB SUCCINATE
     Dosage: 600 MG, QD
     Route: 048
     Dates: start: 202407
  5. HYDROCHLOROTHIAZIDE [Concomitant]
     Active Substance: HYDROCHLOROTHIAZIDE
     Indication: Product used for unknown indication
     Dosage: UNK
     Route: 065

REACTIONS (7)
  - Metastasis [Unknown]
  - Hypersensitivity [Recovered/Resolved]
  - Hyperhidrosis [Unknown]
  - Decreased immune responsiveness [Recovering/Resolving]
  - Dry skin [Recovering/Resolving]
  - Feeling hot [Unknown]
  - Product availability issue [Unknown]

NARRATIVE: CASE EVENT DATE: 20240701
